FAERS Safety Report 21740396 (Version 1)
Quarter: 2022Q4

REPORT INFORMATION
  Report Type: Spontaneous
  Country: US (occurrence: None)
  Receive Date: 20221216
  Receipt Date: 20221216
  Transmission Date: 20230112
  Serious: Yes (Other)
  Sender: FDA-Public Use
  Company Number: None

PATIENT
  Age: 60 Year
  Sex: Male
  Weight: 83.25 kg

DRUGS (12)
  1. LINZESS [Suspect]
     Active Substance: LINACLOTIDE
     Indication: Constipation
     Dosage: OTHER QUANTITY : 1 CAPSULE(S);?
     Route: 048
     Dates: start: 20180101, end: 20221214
  2. TOPROL XL [Concomitant]
     Active Substance: METOPROLOL SUCCINATE
  3. WELCHOL [Concomitant]
     Active Substance: COLESEVELAM HYDROCHLORIDE
  4. VYTORIN [Concomitant]
     Active Substance: EZETIMIBE\SIMVASTATIN
  5. Rx fish oil (triglycerides) [Concomitant]
  6. AMLODIPINE BESYLATE [Concomitant]
     Active Substance: AMLODIPINE BESYLATE
  7. LOSARTAN POTASSIUM [Concomitant]
     Active Substance: LOSARTAN POTASSIUM
  8. AVODART [Concomitant]
     Active Substance: DUTASTERIDE
  9. FLOMAX [Concomitant]
     Active Substance: TAMSULOSIN HYDROCHLORIDE
  10. FIORINAL [Concomitant]
     Active Substance: ASPIRIN\BUTALBITAL\CAFFEINE
  11. Tylenol 3 (back/disc pain) [Concomitant]
  12. Daily 50+ vitamin [Concomitant]

REACTIONS (12)
  - Gastrointestinal pain [None]
  - Gastrointestinal pain [None]
  - Defaecation urgency [None]
  - Insomnia [None]
  - Abdominal pain [None]
  - Pain [None]
  - Decreased activity [None]
  - Haemorrhoids [None]
  - Asthenia [None]
  - Malnutrition [None]
  - Drug ineffective [None]
  - Product complaint [None]

NARRATIVE: CASE EVENT DATE: 20221214
